FAERS Safety Report 5655165-0 (Version None)
Quarter: 2008Q1

REPORT INFORMATION
  Report Type: 
  Country: None (occurrence: None)
  Receive Date: 20080307
  Receipt Date: 20080227
  Transmission Date: 20080703
  Serious: Yes (Hospitalization)
  Sender: FDA-Public Use
  Company Number: JO-JNJFOC-20080204435

PATIENT
  Age: 42 Year
  Sex: Male
  Weight: 40 kg

DRUGS (3)
  1. REMICADE [Suspect]
     Indication: CROHN'S DISEASE
     Route: 042
  2. COROTROPE [Concomitant]
     Dosage: DOSE = TABLET
     Route: 048
  3. PENTASA [Concomitant]
     Dosage: DOSE = TABLET
     Route: 048

REACTIONS (3)
  - CONVULSION [None]
  - LOSS OF CONSCIOUSNESS [None]
  - MUSCLE SPASMS [None]
